FAERS Safety Report 4277437-7 (Version None)
Quarter: 2004Q1

REPORT INFORMATION
  Report Type: 
  Country: None (occurrence: None)
  Receive Date: 20040122
  Receipt Date: 20030618
  Transmission Date: 20041129
  Serious: Yes (Other)
  Sender: FDA-Public Use
  Company Number: US-BRISTOL-MYERS SQUIBB COMPANY-12304416

PATIENT
  Age: 45 Year
  Sex: Female
  Weight: 77 kg

DRUGS (8)
  1. ABILIFY [Suspect]
     Indication: SCHIZOPHRENIA
     Dosage: INCREASED TO 20 MG AUGUST 2003
     Route: 048
     Dates: start: 20030101
  2. RISPERDAL [Concomitant]
  3. SYNTHROID [Concomitant]
  4. COLACE [Concomitant]
  5. ATIVAN [Concomitant]
  6. TYLENOL PM [Concomitant]
  7. CLARINEX [Concomitant]
     Dosage: ^CLARINET^
  8. DEPAKOTE [Concomitant]

REACTIONS (8)
  - ALOPECIA [None]
  - BLOOD PROLACTIN INCREASED [None]
  - DEPRESSED MOOD [None]
  - HOMICIDAL IDEATION [None]
  - INSOMNIA [None]
  - MENSTRUAL DISORDER [None]
  - OBSESSIVE THOUGHTS [None]
  - SUICIDAL IDEATION [None]
